FAERS Safety Report 4822575-0 (Version None)
Quarter: 2005Q4

REPORT INFORMATION
  Report Type: 
  Country: None (occurrence: None)
  Receive Date: 20051104
  Receipt Date: 20051025
  Transmission Date: 20060501
  Serious: Yes (Hospitalization)
  Sender: FDA-Public Use
  Company Number: 198407

PATIENT
  Age: 51 Year
  Sex: Male
  Weight: 92.9874 kg

DRUGS (2)
  1. AVONEX [Suspect]
     Indication: MULTIPLE SCLEROSIS
     Dosage: 30  UG; QW; IM
     Route: 030
     Dates: start: 20031201, end: 20040401
  2. ALBUTEROL [Concomitant]

REACTIONS (6)
  - BONE PAIN [None]
  - CHEST PAIN [None]
  - DIFFICULTY IN WALKING [None]
  - HEART VALVE INSUFFICIENCY [None]
  - INFLUENZA LIKE ILLNESS [None]
  - MITRAL VALVE INCOMPETENCE [None]
